FAERS Safety Report 9167659 (Version 2)
Quarter: 2013Q1

REPORT INFORMATION
  Report Type: Spontaneous
  Country: US (occurrence: None)
  Receive Date: 20130304
  Receipt Date: 20130314
  Transmission Date: 20140127
  Serious: Yes (Hospitalization, Other)
  Sender: FDA-Public Use
  Company Number: 7196446

PATIENT
  Age: 2 Week
  Sex: Male

DRUGS (1)
  1. LEVOTHYROXINE [Suspect]
     Dosage: PRODUCT TAKEN BY THE MOTHER

REACTIONS (5)
  - Maternal drugs affecting foetus [None]
  - Neonatal respiratory distress syndrome [None]
  - Foetal distress syndrome [None]
  - Congenital hypothyroidism [None]
  - Caesarean section [None]
